FAERS Safety Report 10182924 (Version 1)
Quarter: 2014Q2

REPORT INFORMATION
  Report Type: Spontaneous
  Country: US (occurrence: US)
  Receive Date: 20140520
  Receipt Date: 20140520
  Transmission Date: 20141212
  Serious: No
  Sender: FDA-Public Use
  Company Number: US-PFIZER INC-2014135924

PATIENT
  Age: 66 Year
  Sex: Male

DRUGS (1)
  1. XELJANZ [Suspect]
     Indication: RHEUMATOID ARTHRITIS
     Dosage: UNK 2X/DAY MG DOSE UNKNOWN TAKEN TWICE DAILY
     Dates: start: 201401

REACTIONS (5)
  - Malaise [Unknown]
  - Rhinorrhoea [Unknown]
  - Chills [Unknown]
  - Headache [Unknown]
  - Oral herpes [Unknown]
